FAERS Safety Report 11116467 (Version 2)
Quarter: 2015Q3

REPORT INFORMATION
  Report Type: Spontaneous
  Country: JP (occurrence: JP)
  Receive Date: 20150515
  Receipt Date: 20150908
  Transmission Date: 20151125
  Serious: Yes (Life-Threatening, Hospitalization, Disabling, Other)
  Sender: FDA-Public Use
  Company Number: JP-GLAXOSMITHKLINE-JP2015JPN034025

PATIENT
  Age: 68 Year
  Sex: Female

DRUGS (2)
  1. ADRIACIN [Suspect]
     Active Substance: DOXORUBICIN HYDROCHLORIDE
     Indication: LEIOMYOSARCOMA
     Dosage: 60 MG/M2, 1D
     Route: 042
     Dates: start: 20140812, end: 20150127
  2. VOTRIENT [Suspect]
     Active Substance: PAZOPANIB HYDROCHLORIDE
     Indication: LEIOMYOSARCOMA
     Dosage: 800 MG, 1D
     Route: 048
     Dates: start: 20150303, end: 20150305

REACTIONS (12)
  - Mitral valve incompetence [Unknown]
  - Platelet count decreased [Recovered/Resolved]
  - Cardiac failure [Recovering/Resolving]
  - Pericardial effusion [Unknown]
  - Left atrial dilatation [Unknown]
  - Ejection fraction decreased [Unknown]
  - Ventricular hypokinesia [Unknown]
  - Right atrial dilatation [Unknown]
  - Dilatation ventricular [Unknown]
  - Right atrial pressure increased [Unknown]
  - Cardiac failure [Recovered/Resolved with Sequelae]
  - Hepatic function abnormal [Recovered/Resolved]

NARRATIVE: CASE EVENT DATE: 20150305
